FAERS Safety Report 18721120 (Version 1)
Quarter: 2021Q1

REPORT INFORMATION
  Report Type: Spontaneous
  Country: PR (occurrence: PR)
  Receive Date: 20210109
  Receipt Date: 20210109
  Transmission Date: 20210419
  Serious: Yes (Life-Threatening, Hospitalization, Other)
  Sender: FDA-Public Use
  Company Number: PR-LUPIN PHARMACEUTICALS INC.-2020-11579

PATIENT
  Age: 36 Year
  Sex: Male

DRUGS (1)
  1. ZOLPIDEM [Suspect]
     Active Substance: ZOLPIDEM TARTRATE
     Indication: PRODUCT USED FOR UNKNOWN INDICATION
     Dosage: 90 DOSAGE FORM (INGESTION OF 90 PILLS)
     Route: 048

REACTIONS (12)
  - Hyperhidrosis [Recovering/Resolving]
  - Suicide attempt [Unknown]
  - Coma [Recovered/Resolved]
  - Disorientation [Recovering/Resolving]
  - Renal failure [Recovered/Resolved]
  - Incoherent [Recovering/Resolving]
  - Petechiae [Recovering/Resolving]
  - Conjunctival haemorrhage [Recovering/Resolving]
  - Metabolic acidosis [Recovering/Resolving]
  - Intentional overdose [Unknown]
  - Rhabdomyolysis [Recovering/Resolving]
  - Seizure [Recovering/Resolving]
